FAERS Safety Report 7029476-0 (Version None)
Quarter: 2010Q4

REPORT INFORMATION
  Report Type: 
  Country: None (occurrence: None)
  Receive Date: 20101005
  Receipt Date: 20100927
  Transmission Date: 20110411
  Serious: Yes (Other)
  Sender: FDA-Public Use
  Company Number: US-AMGEN-QUU423512

PATIENT
  Sex: Male

DRUGS (3)
  1. NPLATE [Suspect]
     Indication: IDIOPATHIC THROMBOCYTOPENIC PURPURA
     Dates: start: 20100407, end: 20100520
  2. PROMACTA [Concomitant]
  3. CORTICOSTEROIDS [Concomitant]
     Dates: start: 20080712, end: 20081218

REACTIONS (1)
  - CHRONIC MYELOMONOCYTIC LEUKAEMIA [None]
